FAERS Safety Report 20180951 (Version 2)
Quarter: 2023Q1

REPORT INFORMATION
  Report Type: Report from Study
  Country: CH (occurrence: CH)
  Receive Date: 20211214
  Receipt Date: 20230102
  Transmission Date: 20230418
  Serious: Yes (Other)
  Sender: FDA-Public Use
  Company Number: CH-NOVARTISPH-NVSC2021CH242218

PATIENT
  Age: 52 Year
  Sex: Female
  Weight: 98 kg

DRUGS (12)
  1. PLACEBO [Suspect]
     Active Substance: UNSPECIFIED INGREDIENT
     Indication: Acute coronary syndrome
     Dosage: UNK
     Route: 048
     Dates: start: 20211013
  2. PLACEBO [Suspect]
     Active Substance: UNSPECIFIED INGREDIENT
     Dosage: UNK
     Route: 048
     Dates: start: 20211016
  3. ASPIRIN [Concomitant]
     Active Substance: ASPIRIN
     Indication: Myocardial infarction
     Dosage: 1X100 MG
     Route: 048
     Dates: start: 20211013
  4. TICAGRELOR [Concomitant]
     Active Substance: TICAGRELOR
     Indication: Myocardial infarction
     Dosage: 2X90 MG
     Route: 048
     Dates: start: 20211013, end: 20211014
  5. TICAGRELOR [Concomitant]
     Active Substance: TICAGRELOR
     Dosage: 1X90 MG
     Route: 048
     Dates: start: 20211015, end: 20211015
  6. LISINOPRIL [Concomitant]
     Active Substance: LISINOPRIL
     Indication: Cardiac failure
     Dosage: 1X5 MG
     Route: 048
     Dates: start: 20211013, end: 20211013
  7. LISINOPRIL [Concomitant]
     Active Substance: LISINOPRIL
     Dosage: 2X5 MG
     Route: 048
     Dates: start: 20211014
  8. METOPROLOL [Concomitant]
     Active Substance: METOPROLOL
     Indication: Cardiac failure
     Dosage: 1X25 MG
     Route: 048
     Dates: start: 20211013, end: 20211013
  9. METOPROLOL [Concomitant]
     Active Substance: METOPROLOL
     Dosage: 2X25 MG
     Route: 048
     Dates: start: 20211014, end: 20211014
  10. METOPROLOL [Concomitant]
     Active Substance: METOPROLOL
     Dosage: 1X25 MG
     Route: 048
     Dates: start: 20211015
  11. METOPROLOL [Concomitant]
     Active Substance: METOPROLOL
     Dosage: 1X50 MG
     Route: 048
     Dates: start: 20211015
  12. ROSUVASTATIN [Concomitant]
     Active Substance: ROSUVASTATIN
     Indication: Dyslipidaemia
     Dosage: 1X20 MG
     Route: 048
     Dates: start: 20211013

REACTIONS (1)
  - Cardiac ventricular thrombosis [Recovered/Resolved]

NARRATIVE: CASE EVENT DATE: 20211015
